FAERS Safety Report 4282335-9 (Version None)
Quarter: 2004Q1

REPORT INFORMATION
  Report Type: 
  Country: None (occurrence: None)
  Receive Date: 20040112
  Receipt Date: 20031030
  Transmission Date: 20041129
  Serious: Yes (Other)
  Sender: FDA-Public Use
  Company Number: 350584

PATIENT
  Age: 42 Year
  Sex: Male

DRUGS (6)
  1. FUZEON [Suspect]
     Indication: HIV INFECTION
     Dosage: SUBCUTANEOUS
     Route: 058
     Dates: start: 20030715, end: 20030715
  2. BACTRIM [Concomitant]
  3. SEREVENT [Concomitant]
  4. FLOVENT [Concomitant]
  5. NORTRIPTYLINE (NORTRIPTYLINE HYDROCHLORIDE) [Concomitant]
  6. LORAZEPAM [Concomitant]

REACTIONS (7)
  - ADVERSE EVENT [None]
  - ANAPHYLACTIC REACTION [None]
  - BRONCHOSPASM [None]
  - CHILLS [None]
  - DYSPNOEA [None]
  - HYPOTENSION [None]
  - PYREXIA [None]
